FAERS Safety Report 4493225-0 (Version None)
Quarter: 2004Q4

REPORT INFORMATION
  Report Type: 
  Country: None (occurrence: None)
  Receive Date: 20041025
  Receipt Date: 20040923
  Transmission Date: 20050328
  Serious: No
  Sender: FDA-Public Use
  Company Number: WSDF_00409

PATIENT
  Age: 60 Year
  Sex: Female

DRUGS (4)
  1. WINRHO SDF [Suspect]
     Indication: IDIOPATHIC THROMBOCYTOPENIC PURPURA
     Dosage: 5500 MCG ONCE IV
     Route: 042
     Dates: start: 20040512
  2. TYLENOL [Concomitant]
  3. DIPHENHYDRAMINE [Concomitant]
  4. PREDNISONE [Concomitant]

REACTIONS (8)
  - ARTHRALGIA [None]
  - BLOOD UREA ABNORMAL [None]
  - CHILLS [None]
  - FEELING HOT [None]
  - FLUSHING [None]
  - HAEMOGLOBIN ABNORMAL [None]
  - RED BLOOD CELLS URINE POSITIVE [None]
  - TREMOR [None]
